FAERS Safety Report 9454620 (Version 2)
Quarter: 2013Q3

REPORT INFORMATION
  Report Type: Report from Study
  Country: GB (occurrence: GB)
  Receive Date: 20130812
  Receipt Date: 20130906
  Transmission Date: 20140515
  Serious: Yes (Other)
  Sender: FDA-Public Use
  Company Number: GB-ABBOTT-13P-167-1081943-00

PATIENT
  Age: 62 Year
  Sex: Female

DRUGS (11)
  1. HUMIRA [Suspect]
     Indication: RHEUMATOID ARTHRITIS
     Route: 058
     Dates: start: 20130413
  2. LAFLUCAMIDE [Concomitant]
     Indication: ARTHRITIS
     Route: 048
  3. ADCAL [Concomitant]
     Indication: PRODUCT USED FOR UNKNOWN INDICATION
     Route: 048
  4. DOSULEPIN [Concomitant]
     Indication: INSOMNIA
     Dosage: NOTCE
     Route: 048
  5. FRUSEMIDE [Concomitant]
     Indication: DIURETIC THERAPY
     Route: 048
  6. MONOMIL [Concomitant]
     Indication: PRODUCT USED FOR UNKNOWN INDICATION
     Route: 048
  7. PRAVASTATIN [Concomitant]
     Indication: PRODUCT USED FOR UNKNOWN INDICATION
     Dosage: NOCTE
     Route: 048
  8. PREGABALIN [Concomitant]
     Indication: PRODUCT USED FOR UNKNOWN INDICATION
     Route: 048
  9. DOMPERIDON [Concomitant]
     Indication: ANTIEMETIC SUPPORTIVE CARE
     Route: 048
  10. NICORANDOL [Concomitant]
     Indication: ANGINA PECTORIS
     Route: 048
  11. OMEPRAZOLE [Concomitant]
     Indication: DYSPEPSIA
     Route: 048

REACTIONS (13)
  - Visual impairment [Recovering/Resolving]
  - Malaise [Not Recovered/Not Resolved]
  - Dizziness [Not Recovered/Not Resolved]
  - Headache [Not Recovered/Not Resolved]
  - Joint swelling [Not Recovered/Not Resolved]
  - Drug ineffective [Unknown]
  - Unevaluable event [Unknown]
  - Neuropathy peripheral [Unknown]
  - Abnormal sensation in eye [Unknown]
  - Headache [Unknown]
  - Pain [Recovered/Resolved]
  - Pain in extremity [Unknown]
  - Balance disorder [Unknown]
